FAERS Safety Report 7723845-9 (Version None)
Quarter: 2011Q3

REPORT INFORMATION
  Report Type: 
  Country: None (occurrence: None)
  Receive Date: 20110901
  Receipt Date: 20110824
  Transmission Date: 20111222
  Serious: Yes (Death)
  Sender: FDA-Public Use
  Company Number: US-CELGENEUS-163-21880-11081065

PATIENT
  Sex: Female

DRUGS (11)
  1. DIOVAN [Concomitant]
     Dosage: 80 MILLIGRAM
     Route: 065
  2. PROCRIT [Concomitant]
     Dosage: 4000 UNITS
     Route: 058
  3. POTASSIUM CHLORIDE [Concomitant]
     Dosage: 10 MILLIEQUIVALENTS
     Route: 048
  4. REVLIMID [Suspect]
     Indication: MYELODYSPLASTIC SYNDROME
     Dosage: 5 MILLIGRAM
     Route: 048
     Dates: start: 20101027, end: 20110728
  5. PROCRIT [Concomitant]
     Dosage: 2000 UNITS
     Route: 058
  6. NIZATIDINE [Concomitant]
     Dosage: 150 MILLIGRAM
     Route: 048
  7. METOCLOPRAMIDE [Concomitant]
     Dosage: 10 MILLIGRAM
     Route: 048
  8. TYLENOL-500 [Concomitant]
     Dosage: 500 MILLIGRAM
     Route: 048
  9. METOPROLOL TARTRATE [Concomitant]
     Dosage: 50 MILLIGRAM
     Route: 048
  10. LASIX [Concomitant]
     Dosage: 40 MILLIGRAM
     Route: 048
  11. LANOXIN [Concomitant]
     Dosage: 250 MILLIGRAM
     Route: 048

REACTIONS (4)
  - AORTIC STENOSIS [None]
  - CEREBROVASCULAR ACCIDENT [None]
  - ATRIAL FIBRILLATION [None]
  - MYELODYSPLASTIC SYNDROME [None]
